FAERS Safety Report 12205078 (Version 1)
Quarter: 2016Q1

REPORT INFORMATION
  Report Type: Spontaneous
  Country: US (occurrence: US)
  Receive Date: 20160323
  Receipt Date: 20160323
  Transmission Date: 20160526
  Serious: Yes (Life-Threatening, Other)
  Sender: FDA-Public Use
  Company Number: US-INDIVIOR LIMITED-INDV-089005-2016

PATIENT
  Sex: Female

DRUGS (1)
  1. SUBOXONE [Suspect]
     Active Substance: BUPRENORPHINE HYDROCHLORIDE\NALOXONE HYDROCHLORIDE
     Indication: PRODUCT USED FOR UNKNOWN INDICATION
     Dosage: UNKNOWN
     Route: 065

REACTIONS (12)
  - Dyspnoea [Unknown]
  - Cold sweat [Unknown]
  - Loss of consciousness [Recovering/Resolving]
  - Unresponsive to stimuli [Recovering/Resolving]
  - Hypokinesia [Not Recovered/Not Resolved]
  - Pupillary reflex impaired [Unknown]
  - Venous pressure jugular decreased [Unknown]
  - Pulse abnormal [Unknown]
  - Overdose [Unknown]
  - Respiratory depression [Recovering/Resolving]
  - Miosis [Unknown]
  - Pallor [Unknown]
